FAERS Safety Report 20589768 (Version 1)
Quarter: 2022Q1

REPORT INFORMATION
  Report Type: Report from Study
  Country: US (occurrence: US)
  Receive Date: 20220314
  Receipt Date: 20220314
  Transmission Date: 20220423
  Serious: No
  Sender: FDA-Public Use
  Company Number: US-NOVARTISTESTPH-NVSC2022US058994

PATIENT
  Age: 56 Year
  Sex: Male
  Weight: 126.1 kg

DRUGS (1)
  1. ENTRESTO [Suspect]
     Active Substance: SACUBITRIL\VALSARTAN
     Indication: Atrioventricular block
     Dosage: 50 MG (24/26 MG), BID
     Route: 048
     Dates: start: 202201, end: 202202

REACTIONS (2)
  - Epistaxis [Not Recovered/Not Resolved]
  - Product use in unapproved indication [Unknown]

NARRATIVE: CASE EVENT DATE: 20220101
